FAERS Safety Report 8285817 (Version 3)
Quarter: 2014Q2

REPORT INFORMATION
  Report Type: Report from Study
  Country: CA (occurrence: CA)
  Receive Date: 20111213
  Receipt Date: 20140515
  Transmission Date: 20141212
  Serious: Yes (Other)
  Sender: FDA-Public Use
  Company Number: PHHY2011CA105868

PATIENT
  Sex: Female

DRUGS (1)
  1. SANDOSTATIN LAR [Suspect]
     Indication: CARCINOID TUMOUR
     Dosage: 20 MG, QMO
     Route: 030
     Dates: start: 20101217

REACTIONS (5)
  - Hepatic cancer [Unknown]
  - Weight increased [Unknown]
  - Musculoskeletal stiffness [Unknown]
  - Diarrhoea [Recovered/Resolved]
  - Nausea [Unknown]
